FAERS Safety Report 15901196 (Version 2)
Quarter: 2019Q1

REPORT INFORMATION
  Report Type: Spontaneous
  Country: DE (occurrence: DE)
  Receive Date: 20190201
  Receipt Date: 20190220
  Transmission Date: 20190417
  Serious: Yes (Hospitalization)
  Sender: FDA-Public Use
  Company Number: DE-ANIPHARMA-2019-DE-000016

PATIENT
  Sex: Female
  Weight: 79 kg

DRUGS (2)
  1. RIBOCICLIB. [Suspect]
     Active Substance: RIBOCICLIB
     Indication: BREAST CANCER METASTATIC
     Dosage: 3 DF (200 MG), QD,1-21,7D PAUSE / 2 DF DAILY / 2 DF DAILY
     Route: 048
     Dates: start: 20180105, end: 20181120
  2. ANASTROZOLE. [Suspect]
     Active Substance: ANASTROZOLE
     Dosage: 1 MG DAILY
     Route: 048
     Dates: start: 20180105, end: 20181120

REACTIONS (7)
  - Chronic kidney disease [Unknown]
  - Pneumothorax [Recovered/Resolved]
  - Dyspnoea [Recovering/Resolving]
  - Concomitant disease progression [Unknown]
  - Cough [Recovered/Resolved]
  - General physical health deterioration [Recovered/Resolved]
  - Ascites [Recovering/Resolving]

NARRATIVE: CASE EVENT DATE: 201801
